FAERS Safety Report 17561624 (Version 1)
Quarter: 2020Q1

REPORT INFORMATION
  Report Type: Spontaneous
  Country: FR (occurrence: FR)
  Receive Date: 20200319
  Receipt Date: 20200319
  Transmission Date: 20200409
  Serious: Yes (Death, Other)
  Sender: FDA-Public Use
  Company Number: FR-BAUSCH-BL-2020-008576

PATIENT
  Age: 60 Year
  Sex: Female

DRUGS (2)
  1. DICLOFENAC [Suspect]
     Active Substance: DICLOFENAC
     Indication: PRODUCT USED FOR UNKNOWN INDICATION
     Dosage: NOT SPECIFIED
     Route: 048
     Dates: end: 20200112
  2. BIPROFENID LP [Suspect]
     Active Substance: KETOPROFEN
     Indication: PRODUCT USED FOR UNKNOWN INDICATION
     Dosage: EXTENDED RELEASE SCORED TABLET
     Route: 048
     Dates: end: 20200112

REACTIONS (4)
  - Necrotising fasciitis [Fatal]
  - Peritonitis bacterial [Recovered/Resolved]
  - Fournier^s gangrene [Fatal]
  - Septic shock [Recovered/Resolved]

NARRATIVE: CASE EVENT DATE: 20200112
